FAERS Safety Report 22372444 (Version 1)
Quarter: 2023Q2

REPORT INFORMATION
  Report Type: Spontaneous
  Country: US (occurrence: US)
  Receive Date: 20230526
  Receipt Date: 20230526
  Transmission Date: 20230721
  Serious: Yes (Death, Other)
  Sender: FDA-Public Use
  Company Number: US-AMGEN-USASP2023085660

PATIENT

DRUGS (2)
  1. FILGRASTIM [Suspect]
     Active Substance: FILGRASTIM
     Indication: Stem cell transplant
     Dosage: UNK
     Route: 065
  2. MOTIXAFORTIDE [Suspect]
     Active Substance: MOTIXAFORTIDE
     Indication: Product used for unknown indication
     Dosage: UNK
     Route: 065

REACTIONS (13)
  - Death [Fatal]
  - Hypokalaemia [Unknown]
  - Pruritus [Unknown]
  - Flushing [Unknown]
  - Catheter site pain [Unknown]
  - Injection site pruritus [Unknown]
  - Injection site pain [Unknown]
  - Urticaria [Unknown]
  - Injection site erythema [Unknown]
  - Bone pain [Unknown]
  - Nausea [Unknown]
  - Erythema [Unknown]
  - Back pain [Unknown]
